FAERS Safety Report 11303560 (Version 1)
Quarter: 2015Q3

REPORT INFORMATION
  Report Type: Spontaneous
  Country: US (occurrence: US)
  Receive Date: 20150723
  Receipt Date: 20150723
  Transmission Date: 20151125
  Serious: No
  Sender: FDA-Public Use
  Company Number: US-JNJFOC-20150515234

PATIENT

DRUGS (2)
  1. CETIRIZINE HYDROCHLORIDE. [Suspect]
     Active Substance: CETIRIZINE HYDROCHLORIDE
     Route: 065
  2. CETIRIZINE HYDROCHLORIDE. [Suspect]
     Active Substance: CETIRIZINE HYDROCHLORIDE
     Indication: RHINITIS PERENNIAL
     Route: 065

REACTIONS (23)
  - Dry mouth [Unknown]
  - Influenza like illness [Unknown]
  - Dysmenorrhoea [Unknown]
  - Pharyngitis [Unknown]
  - Therapeutic response unexpected [Unknown]
  - Dyspepsia [Unknown]
  - Tooth disorder [Unknown]
  - Pain [Unknown]
  - Arthralgia [Unknown]
  - Off label use [Unknown]
  - Injury [Unknown]
  - Somnolence [Unknown]
  - Drug ineffective for unapproved indication [Unknown]
  - Headache [Unknown]
  - Pyrexia [Unknown]
  - Otitis media [Unknown]
  - Abdominal pain [Unknown]
  - Nausea [Unknown]
  - Cough [Unknown]
  - Bronchitis [Unknown]
  - Infection [Unknown]
  - Fatigue [Unknown]
  - Eye pain [Unknown]
